FAERS Safety Report 12497610 (Version 3)
Quarter: 2016Q3

REPORT INFORMATION
  Report Type: Spontaneous
  Country: JP (occurrence: JP)
  Receive Date: 20160625
  Receipt Date: 20160909
  Transmission Date: 20161109
  Serious: Yes (Other)
  Sender: FDA-Public Use
  Company Number: JP-BRISTOL-MYERS SQUIBB COMPANY-BMS-2016-051127

PATIENT
  Age: 68 Year
  Sex: Female
  Weight: 45 kg

DRUGS (1)
  1. KENACORT-A [Suspect]
     Active Substance: TRIAMCINOLONE
     Indication: PERIARTHRITIS
     Dosage: 10 MG, BID
     Route: 014
     Dates: start: 20160218

REACTIONS (3)
  - Polyuria [Recovering/Resolving]
  - Diabetes mellitus [Not Recovered/Not Resolved]
  - Polydipsia [Recovering/Resolving]

NARRATIVE: CASE EVENT DATE: 201602
